FAERS Safety Report 14327723 (Version 3)
Quarter: 2018Q1

REPORT INFORMATION
  Report Type: Spontaneous
  Country: US (occurrence: US)
  Receive Date: 20171227
  Receipt Date: 20180302
  Transmission Date: 20180509
  Serious: Yes (Death, Hospitalization, Other)
  Sender: FDA-Public Use
  Company Number: US-PFIZER INC-2017546870

PATIENT
  Age: 73 Year
  Sex: Male
  Weight: 87.75 kg

DRUGS (2)
  1. MARIJUANA [Concomitant]
     Active Substance: CANNABIS SATIVA SUBSP. INDICA TOP
     Indication: APPETITE DISORDER
     Dosage: UNK
     Dates: start: 20170119, end: 201802
  2. SUTENT [Suspect]
     Active Substance: SUNITINIB MALATE
     Indication: RENAL CANCER METASTATIC
     Dosage: 37.5 MG, CYCLIC (37.5MG 1 TABLET BY MOUTH FOR 4 WEEKS THEN OFF FOR 2 WEEKS) (1 PILL PER DAY/28DAYS)
     Route: 048
     Dates: start: 20171121, end: 201712

REACTIONS (6)
  - Death [Fatal]
  - Neoplasm progression [Unknown]
  - Thrombosis [Unknown]
  - Weight decreased [Unknown]
  - Neoplasm recurrence [Unknown]
  - Pulmonary haemorrhage [Recovered/Resolved]

NARRATIVE: CASE EVENT DATE: 2017
